FAERS Safety Report 14472758 (Version 1)
Quarter: 2018Q1

REPORT INFORMATION
  Report Type: Spontaneous
  Country: US (occurrence: US)
  Receive Date: 20180201
  Receipt Date: 20180201
  Transmission Date: 20180509
  Serious: No
  Sender: FDA-Public Use
  Company Number: US-KADMON PHARMACEUTICALS, LLC-KAD-201704-00472

PATIENT
  Age: 56 Year
  Sex: Female

DRUGS (15)
  1. VIEKIRA XR [Suspect]
     Active Substance: DASABUVIR SODIUM MONOHYDRATE\OMBITASVIR HEMINONAHYDRATE\PARITAPREVIR DIHYDRATE\RITONAVIR
     Indication: HEPATITIS C
     Dosage: TABLET
     Route: 048
     Dates: start: 20170412
  2. IBUPROFEN. [Concomitant]
     Active Substance: IBUPROFEN
  3. VITAMIN D3 [Concomitant]
     Active Substance: CHOLECALCIFEROL
  4. RANITIDINE. [Concomitant]
     Active Substance: RANITIDINE
  5. TIZANIDINE. [Concomitant]
     Active Substance: TIZANIDINE
  6. LISINOPRIL. [Concomitant]
     Active Substance: LISINOPRIL
  7. MULTIVITAMINS [Concomitant]
     Active Substance: VITAMINS
  8. XANAX [Concomitant]
     Active Substance: ALPRAZOLAM
  9. SENOKOT [Concomitant]
     Active Substance: SENNOSIDES
  10. GABAPENTIN. [Concomitant]
     Active Substance: GABAPENTIN
  11. ADVAIR (SERETIDE) [Concomitant]
  12. RIBAVIRIN 1200 MG TABLETS [Suspect]
     Active Substance: RIBAVIRIN
     Indication: HEPATITIS C
     Route: 048
     Dates: start: 20170412
  13. PROVENTIL [Concomitant]
     Active Substance: ALBUTEROL
  14. ALBUTEROL. [Concomitant]
     Active Substance: ALBUTEROL
  15. VITAMIN E [Concomitant]
     Active Substance: .ALPHA.-TOCOPHEROL

REACTIONS (2)
  - Arthralgia [Not Recovered/Not Resolved]
  - Nausea [Not Recovered/Not Resolved]

NARRATIVE: CASE EVENT DATE: 20170412
